FAERS Safety Report 4667790-4 (Version None)
Quarter: 2005Q2

REPORT INFORMATION
  Report Type: 
  Country: None (occurrence: None)
  Receive Date: 20050520
  Receipt Date: 20050512
  Transmission Date: 20051028
  Serious: Yes (Hospitalization)
  Sender: FDA-Public Use
  Company Number: AU-GLAXOSMITHKLINE-B0381597A

PATIENT
  Age: 35 Year
  Sex: Female

DRUGS (2)
  1. ZYBAN [Suspect]
     Indication: SMOKING CESSATION THERAPY
     Route: 048
     Dates: start: 20050503, end: 20050510
  2. INDERAL [Concomitant]
     Dosage: 40MG PER DAY
     Route: 065

REACTIONS (4)
  - DIZZINESS [None]
  - MIGRAINE [None]
  - MYDRIASIS [None]
  - SENSORY LOSS [None]
